FAERS Safety Report 17281462 (Version 2)
Quarter: 2020Q1

REPORT INFORMATION
  Report Type: Report from Study
  Country: US (occurrence: US)
  Receive Date: 20200117
  Receipt Date: 20200122
  Transmission Date: 20200409
  Serious: Yes (Hospitalization, Other)
  Sender: FDA-Public Use
  Company Number: US-ROCHE-2519698

PATIENT
  Age: 68 Year
  Sex: Male

DRUGS (2)
  1. ESBRIET [Suspect]
     Active Substance: PIRFENIDONE
     Indication: IDIOPATHIC PULMONARY FIBROSIS
     Route: 048
     Dates: start: 201909
  2. OXYGEN. [Concomitant]
     Active Substance: OXYGEN
     Route: 055
     Dates: start: 20191230

REACTIONS (4)
  - Respiratory syncytial virus infection [Unknown]
  - Pneumonia [Unknown]
  - Generalised tonic-clonic seizure [Unknown]
  - Photopsia [Recovered/Resolved]

NARRATIVE: CASE EVENT DATE: 20191130
